FAERS Safety Report 25980635 (Version 4)
Quarter: 2025Q4

REPORT INFORMATION
  Report Type: Report from Study
  Country: US (occurrence: US)
  Receive Date: 20251030
  Receipt Date: 20251125
  Transmission Date: 20260117
  Serious: Yes (Hospitalization, Other)
  Sender: MALLINCKRODT
  Company Number: US-MALLINCKRODT-MNK202506768

PATIENT
  Sex: Female

DRUGS (1)
  1. CORTICOTROPIN [Suspect]
     Active Substance: CORTICOTROPIN
     Indication: Psoriatic arthropathy
     Dosage: 80 UNITS

REACTIONS (9)
  - Hospitalisation [Unknown]
  - Renal failure [Unknown]
  - Nausea [Unknown]
  - Pain [Not Recovered/Not Resolved]
  - Tremor [Unknown]
  - Back disorder [Unknown]
  - Eye disorder [Unknown]
  - Withdrawal syndrome [Unknown]
  - Headache [Unknown]

NARRATIVE: CASE EVENT DATE: 20250101
